FAERS Safety Report 18152441 (Version 2)
Quarter: 2020Q3

REPORT INFORMATION
  Report Type: Spontaneous
  Country: US (occurrence: US)
  Receive Date: 20200814
  Receipt Date: 20200916
  Transmission Date: 20201103
  Serious: Yes (Hospitalization, Other)
  Sender: FDA-Public Use
  Company Number: US-ASTRAZENECA-2020SF00240

PATIENT
  Age: 4634 Week
  Sex: Female
  Weight: 67.6 kg

DRUGS (4)
  1. MULTIVITAMIN [Concomitant]
     Active Substance: VITAMINS
     Dosage: UNKNOWN
     Route: 065
  2. BEVESPI AEROSPHERE [Suspect]
     Active Substance: FORMOTEROL FUMARATE\GLYCOPYRROLATE
     Indication: CHRONIC OBSTRUCTIVE PULMONARY DISEASE
     Dosage: ONE PUFF, DAILY
     Route: 055
  3. BEVESPI AEROSPHERE [Suspect]
     Active Substance: FORMOTEROL FUMARATE\GLYCOPYRROLATE
     Indication: CHRONIC OBSTRUCTIVE PULMONARY DISEASE
     Dosage: 9/4.8 TWO PUFFS DAILY
     Route: 055
  4. LIPITOR [Concomitant]
     Active Substance: ATORVASTATIN CALCIUM
     Indication: BLOOD CHOLESTEROL
     Route: 048
     Dates: start: 201008

REACTIONS (8)
  - Lower limb fracture [Recovering/Resolving]
  - Intentional product misuse [Unknown]
  - Device delivery system issue [Unknown]
  - Hip fracture [Recovering/Resolving]
  - Incorrect dose administered by device [Unknown]
  - COVID-19 [Unknown]
  - Wrong technique in device usage process [Unknown]
  - Limb injury [Unknown]

NARRATIVE: CASE EVENT DATE: 20200805
